FAERS Safety Report 9203111 (Version 1)
Quarter: 2013Q1

REPORT INFORMATION
  Report Type: Spontaneous
  Country: IT (occurrence: None)
  Receive Date: 20130328
  Receipt Date: 20130328
  Transmission Date: 20140127
  Serious: Yes (Hospitalization, Other)
  Sender: FDA-Public Use
  Company Number: AUR-APL-2013-02577

PATIENT
  Age: 83 Year
  Sex: Male

DRUGS (6)
  1. IRBESARTAN [Suspect]
     Indication: HYPERTENSION
     Route: 048
     Dates: start: 20100101, end: 20130125
  2. LASITONE [Suspect]
     Indication: HYPERTENSION
     Dosage: 25MG/37 MG DAILY, ORAL
     Route: 048
     Dates: start: 20100101, end: 20130125
  3. RYTMONORM (PROPAFENONE HYDROCHLORIDE) [Concomitant]
  4. CARDIOASPIRIN (ACETYLSALICYLIC ACID) [Concomitant]
  5. CARDURA (DOXAZOSIN MESILATE) [Concomitant]
  6. SIMVASTATIN (SIMVASTATIN) [Concomitant]

REACTIONS (5)
  - Arthralgia [None]
  - Renal failure acute [None]
  - Hyperkalaemia [None]
  - Metabolic acidosis [None]
  - Blood calcium decreased [None]
